FAERS Safety Report 20819122 (Version 1)
Quarter: 2022Q2

REPORT INFORMATION
  Report Type: Spontaneous
  Country: FR (occurrence: FR)
  Receive Date: 20220512
  Receipt Date: 20220512
  Transmission Date: 20220720
  Serious: Yes (Other)
  Sender: FDA-Public Use
  Company Number: FR-PFIZER INC-202200655059

PATIENT
  Sex: Female

DRUGS (1)
  1. XELJANZ [Suspect]
     Active Substance: TOFACITINIB CITRATE
     Indication: Colitis ulcerative
     Dosage: 10 MG IN THE MORNING AND 5 MG IN THE EVENING
     Dates: start: 2019

REACTIONS (3)
  - Metastasis [Unknown]
  - Off label use [Unknown]
  - Neoplasm recurrence [Unknown]
